FAERS Safety Report 8305455 (Version 3)
Quarter: 2012Q4

REPORT INFORMATION
  Report Type: 
  Country: JP (occurrence: JP)
  Receive Date: 20111221
  Receipt Date: 20120830
  Transmission Date: 20130627
  Serious: Yes (Hospitalization, Other)
  Sender: FDA-Public Use
  Company Number: JP-BRISTOL-MYERS SQUIBB COMPANY-15050594

PATIENT
  Age: 34 Year
  Sex: Female

DRUGS (1)
  1. ABILIFY TABS [Suspect]
     Indication: SCHIZOPHRENIA
     Dosage: 3mg,28Mar:24Apr,6mg 25Apr:8May,12mg,9:22May,18mg23May07:19Jun07,24mg,20Jun07:5Feb10,6Feb10:18mg,12Mg
     Route: 048
     Dates: start: 20070328, end: 20110916

REACTIONS (5)
  - Premature labour [Unknown]
  - Gestational diabetes [Recovered/Resolved]
  - Normal newborn [Unknown]
  - Pregnancy [Recovered/Resolved]
  - Exposure via father [Unknown]
